FAERS Safety Report 6359383-8 (Version None)
Quarter: 2009Q3

REPORT INFORMATION
  Report Type: 
  Country: None (occurrence: None)
  Receive Date: 20090917
  Receipt Date: 20070828
  Transmission Date: 20100115
  Serious: Yes (Other)
  Sender: FDA-Public Use
  Company Number: US-ASTRAZENECA-2006UW08083

PATIENT
  Age: 16019 Day
  Sex: Male
  Weight: 104.3 kg

DRUGS (26)
  1. SEROQUEL [Suspect]
     Indication: DEPRESSION
     Route: 048
     Dates: start: 20000501, end: 20050801
  2. SEROQUEL [Suspect]
     Indication: BIPOLAR DISORDER
     Route: 048
     Dates: start: 20000501, end: 20050801
  3. SEROQUEL [Suspect]
     Dosage: 100 MG - 700 MG
     Route: 048
     Dates: start: 20000928
  4. SEROQUEL [Suspect]
     Dosage: 100 MG - 700 MG
     Route: 048
     Dates: start: 20000928
  5. RISPERDAL [Concomitant]
     Route: 048
     Dates: start: 19961105
  6. RISPERDAL [Concomitant]
     Dates: start: 20000101
  7. ASPIRIN [Concomitant]
     Dosage: 81 MG - 325 MG
     Route: 048
     Dates: start: 19961108
  8. CATAPRES [Concomitant]
     Route: 048
     Dates: start: 19961105
  9. RESTORIL [Concomitant]
     Dosage: 30 MG - 50 MG
     Route: 048
     Dates: start: 19961112
  10. ZOLOFT [Concomitant]
     Dosage: 50 MG - 100 MG
     Route: 048
     Dates: start: 19961112
  11. EFFEXOR [Concomitant]
     Dosage: 75 MG - 150 MG
     Route: 048
     Dates: start: 19961012
  12. KLONOPIN [Concomitant]
     Indication: ANXIETY
     Dosage: 1 MG - 3 MG
     Route: 048
     Dates: start: 20000101
  13. DEPAKOTE [Concomitant]
     Route: 048
     Dates: start: 19970224
  14. DESYREL [Concomitant]
     Dosage: 50 MG - 150 MG
     Route: 048
     Dates: start: 19970224
  15. PROCARDIA [Concomitant]
     Dosage: 10 MG - 60 MG
     Dates: start: 19970224
  16. ZESTRIL [Concomitant]
     Route: 048
     Dates: start: 20000923
  17. ZOCOR [Concomitant]
     Route: 048
     Dates: start: 20000101
  18. LIPITOR [Concomitant]
     Dosage: 10 MG - 40 MG
     Dates: start: 20000309
  19. IMDUR [Concomitant]
     Route: 048
     Dates: start: 20000309
  20. NORVASC [Concomitant]
     Route: 048
     Dates: start: 20000101
  21. AMBIEN [Concomitant]
     Indication: SLEEP DISORDER
     Dates: start: 20000101
  22. NEURONTIN [Concomitant]
     Dosage: 200MG -800MG
     Dates: start: 20010524
  23. WELLBUTRIN SR [Concomitant]
     Dosage: 150MG - 250MG
     Dates: start: 20020607
  24. HALDOL [Concomitant]
     Dates: start: 20020304
  25. LYRICA [Concomitant]
     Dosage: 150MG -300MG
     Dates: start: 20060909
  26. ABILIFY [Concomitant]
     Indication: AGITATION
     Dates: start: 20070604

REACTIONS (12)
  - ACUTE MYOCARDIAL INFARCTION [None]
  - ANGINA PECTORIS [None]
  - CARDIAC DISORDER [None]
  - CARDIAC FAILURE CONGESTIVE [None]
  - DIABETES MELLITUS [None]
  - DYSPNOEA [None]
  - FOOT OPERATION [None]
  - MYOCARDIAL ISCHAEMIA [None]
  - NEUROPATHY PERIPHERAL [None]
  - PNEUMOTHORAX [None]
  - PNEUMOTHORAX TRAUMATIC [None]
  - TYPE 2 DIABETES MELLITUS [None]
